FAERS Safety Report 9181443 (Version 1)
Quarter: 2013Q1

REPORT INFORMATION
  Report Type: Spontaneous
  Country: US (occurrence: None)
  Receive Date: 20130321
  Receipt Date: 20130321
  Transmission Date: 20140127
  Serious: Yes (Other)
  Sender: FDA-Public Use
  Company Number: None

PATIENT
  Age: 81 Year
  Sex: Male

DRUGS (1)
  1. STIVARGA [Suspect]
     Indication: COLORECTAL CANCER
     Dosage: 2 TABS QD X7 DAYS ORAL
     Route: 048
     Dates: start: 20130313

REACTIONS (4)
  - Nausea [None]
  - Aphagia [None]
  - Therapy cessation [None]
  - Condition aggravated [None]
